FAERS Safety Report 7740615-6 (Version None)
Quarter: 2011Q3

REPORT INFORMATION
  Report Type: 
  Country: None (occurrence: None)
  Receive Date: 20110909
  Receipt Date: 20110902
  Transmission Date: 20111222
  Serious: Yes (Other)
  Sender: FDA-Public Use
  Company Number: PR-PFIZER INC-2008058109

PATIENT
  Age: 27 Year
  Sex: Female

DRUGS (4)
  1. RITONAVIR [Suspect]
     Indication: HIV INFECTION
     Route: 048
     Dates: start: 20080424
  2. NELFINAVIR MESYLATE [Suspect]
     Indication: HIV INFECTION
     Route: 048
  3. FOSAMPRENAVIR [Suspect]
     Indication: HIV INFECTION
     Route: 048
     Dates: start: 20080424
  4. LAMIVUDINE + ZIDOVUDINE [Suspect]
     Indication: HIV INFECTION
     Route: 048

REACTIONS (2)
  - PREMATURE SEPARATION OF PLACENTA [None]
  - ABORTION SPONTANEOUS [None]
